FAERS Safety Report 4303241-7 (Version None)
Quarter: 2004Q1

REPORT INFORMATION
  Report Type: 
  Country: None (occurrence: None)
  Receive Date: 20040223
  Receipt Date: 20040217
  Transmission Date: 20041129
  Serious: Yes (Hospitalization)
  Sender: FDA-Public Use
  Company Number: MK200402-0164-1

PATIENT
  Age: 43 Year
  Sex: Female

DRUGS (2)
  1. TOFRANIL [Suspect]
     Dosage: 150MG, DAILY
  2. ANAFRANIL [Suspect]
     Dosage: 100MG/DAILY

REACTIONS (4)
  - ANXIETY [None]
  - IRRITABILITY [None]
  - MAJOR DEPRESSION [None]
  - SUICIDAL IDEATION [None]
